FAERS Safety Report 9513695 (Version 1)
Quarter: 2013Q3

REPORT INFORMATION
  Report Type: Spontaneous
  Country: BR (occurrence: BR)
  Receive Date: 20130910
  Receipt Date: 20130910
  Transmission Date: 20140515
  Serious: Yes (Other)
  Sender: FDA-Public Use
  Company Number: BR-BRISTOL-MYERS SQUIBB COMPANY-19231646

PATIENT
  Age: 71 Year
  Sex: Female

DRUGS (4)
  1. ONGLYZA TABS 5 MG [Suspect]
     Dosage: 1DF:1 TAB
     Route: 048
  2. KOMBOGLYZE [Suspect]
     Indication: DIABETES MELLITUS
     Dosage: 1DF: 1 TABLET OF KOMBIGLYZE 5 MG/1000 MG
  3. AMARYL [Concomitant]
  4. SYNTHROID [Concomitant]

REACTIONS (2)
  - Cataract operation [Recovering/Resolving]
  - Overdose [Unknown]
